FAERS Safety Report 5146980-0 (Version None)
Quarter: 2006Q4

REPORT INFORMATION
  Report Type: 
  Country: None (occurrence: None)
  Receive Date: 20061109
  Receipt Date: 20060824
  Transmission Date: 20070319
  Serious: Yes (Disabling)
  Sender: FDA-Public Use
  Company Number: GB-ELI_LILLY_AND_COMPANY-GB200608005257

PATIENT
  Age: 89 Year
  Sex: Female

DRUGS (7)
  1. FORTEO [Suspect]
     Indication: OSTEOPOROSIS
     Dosage: 20 UG, DAILY (1/D)
     Route: 058
     Dates: start: 20051001
  2. WARFARIN SODIUM [Concomitant]
     Indication: PULMONARY EMBOLISM
     Route: 048
     Dates: start: 19930101
  3. ADCAL-D3 [Concomitant]
     Indication: OSTEOPOROSIS
     Dosage: UNK, 2/D
     Route: 048
     Dates: start: 20030101
  4. LANSOPRAZOLE [Concomitant]
     Indication: OESOPHAGITIS
     Dosage: 30 MG, UNK
     Route: 048
  5. FUROSEMIDE [Concomitant]
     Indication: CARDIAC FAILURE CONGESTIVE
     Dosage: 40 MG, UNK
     Route: 048
  6. AMILORIDE HYDROCHLORIDE [Concomitant]
     Indication: CARDIAC FAILURE CONGESTIVE
     Dosage: 5 MG, UNK
     Route: 048
  7. ACETAMINOPHEN [Concomitant]
     Dosage: 50 MG, UNK
     Route: 048

REACTIONS (1)
  - HUMERUS FRACTURE [None]
